FAERS Safety Report 8814894 (Version 1)
Quarter: 2012Q4

REPORT INFORMATION
  Report Type: 
  Country: US (occurrence: US)
  Receive Date: 20120928
  Receipt Date: 20120928
  Transmission Date: 20130627
  Serious: Yes (Hospitalization)
  Sender: FDA-Public Use
  Company Number: US-WATSON-2012-16299

PATIENT

DRUGS (1)
  1. NEXT CHOICE [Suspect]
     Indication: ABORTION INDUCED
     Dosage: 1 tablet one time
     Route: 064
     Dates: start: 20120201, end: 20120201

REACTIONS (2)
  - Premature baby [Unknown]
  - Maternal drugs affecting foetus [None]
